FAERS Safety Report 19639504 (Version 1)
Quarter: 2021Q3

REPORT INFORMATION
  Report Type: Spontaneous
  Country: US (occurrence: US)
  Receive Date: 20210729
  Receipt Date: 20210729
  Transmission Date: 20211014
  Serious: No
  Sender: FDA-Public Use
  Company Number: US-PERRIGO-20US016820

PATIENT
  Sex: Male
  Weight: 86.17 kg

DRUGS (2)
  1. MINOXIDIL. [Suspect]
     Active Substance: MINOXIDIL
     Indication: ALOPECIA
     Dosage: 1 ML, QD
     Route: 061
     Dates: start: 2019, end: 202010
  2. FINASTERIDE. [Concomitant]
     Active Substance: FINASTERIDE
     Indication: ALOPECIA
     Dosage: 1 MG
     Route: 065
     Dates: start: 2019, end: 202010

REACTIONS (7)
  - Skin sensitisation [Recovering/Resolving]
  - Application site erythema [Recovering/Resolving]
  - Inappropriate schedule of product administration [Recovering/Resolving]
  - Application site pruritus [Recovering/Resolving]
  - Dandruff [Recovering/Resolving]
  - Alopecia [Recovering/Resolving]
  - Application site pain [Recovering/Resolving]

NARRATIVE: CASE EVENT DATE: 2019
